FAERS Safety Report 23214635 (Version 1)
Quarter: 2023Q4

REPORT INFORMATION
  Report Type: Spontaneous
  Country: US (occurrence: US)
  Receive Date: 20231121
  Receipt Date: 20231121
  Transmission Date: 20240110
  Serious: No
  Sender: FDA-Public Use
  Company Number: US-Dermavant-000872

PATIENT
  Sex: Male

DRUGS (1)
  1. TAPINAROF [Suspect]
     Active Substance: TAPINAROF
     Indication: Intertrigo

REACTIONS (1)
  - Drug ineffective for unapproved indication [Unknown]
